FAERS Safety Report 7933637-3 (Version None)
Quarter: 2011Q4

REPORT INFORMATION
  Report Type: 
  Country: None (occurrence: None)
  Receive Date: 20111122
  Receipt Date: 20111107
  Transmission Date: 20120403
  Serious: Yes (Death)
  Sender: FDA-Public Use
  Company Number: US-ROCHE-1012355

PATIENT

DRUGS (4)
  1. HERCEPTIN [Suspect]
     Indication: NON-SMALL CELL LUNG CANCER
     Dosage: LOADING DOSE
     Route: 042
     Dates: start: 20000125
  2. PACLITAXEL [Suspect]
     Indication: NON-SMALL CELL LUNG CANCER
     Route: 042
     Dates: start: 20000125
  3. CARBOPLATIN [Suspect]
     Indication: NON-SMALL CELL LUNG CANCER
     Dosage: AUC6
     Route: 042
     Dates: start: 20000125
  4. HERCEPTIN [Suspect]

REACTIONS (1)
  - NON-SMALL CELL LUNG CANCER [None]
